FAERS Safety Report 15042403 (Version 1)
Quarter: 2018Q2

REPORT INFORMATION
  Report Type: Spontaneous
  Country: US (occurrence: US)
  Receive Date: 20180531
  Receipt Date: 20180531
  Transmission Date: 20180711
  Serious: No
  Sender: FDA-Public Use
  Company Number: None

PATIENT
  Age: 79 Year
  Sex: Male
  Weight: 74.25 kg

DRUGS (1)
  1. PACLITAXEL 6 MG/ML 50 ML  VIAL HOSPIRA [Suspect]
     Active Substance: PACLITAXEL
     Indication: LARYNGEAL CANCER
     Route: 042
     Dates: start: 20180515, end: 20180529

REACTIONS (4)
  - Abdominal pain [None]
  - Dizziness [None]
  - Dyspnoea [None]
  - Syncope [None]

NARRATIVE: CASE EVENT DATE: 20180529
